FAERS Safety Report 13448210 (Version 1)
Quarter: 2017Q2

REPORT INFORMATION
  Report Type: Spontaneous
  Country: SE (occurrence: SE)
  Receive Date: 20170417
  Receipt Date: 20170417
  Transmission Date: 20170830
  Serious: Yes (Hospitalization)
  Sender: FDA-Public Use
  Company Number: SE-TEVA-757462ACC

PATIENT
  Age: 33 Year
  Sex: Female

DRUGS (17)
  1. STILNOCT 5 MG FILMDRAGERAD TABLETT [Suspect]
     Active Substance: ZOLPIDEM TARTRATE
     Route: 048
     Dates: start: 20150323, end: 20150323
  2. PROMETHAZINE [Concomitant]
     Active Substance: PROMETHAZINE\PROMETHAZINE HYDROCHLORIDE
  3. TROMBYL [Concomitant]
     Active Substance: ASPIRIN
  4. LIPITOR [Concomitant]
     Active Substance: ATORVASTATIN CALCIUM
  5. STESOLID [Suspect]
     Active Substance: DIAZEPAM
     Route: 048
     Dates: start: 20150323, end: 20150323
  6. CERAZETTE [Concomitant]
     Active Substance: DESOGESTREL
  7. METOPROLOL TARTRATE. [Concomitant]
     Active Substance: METOPROLOL TARTRATE
  8. OMEPRAZOL ACTAVIS [Concomitant]
     Active Substance: OMEPRAZOLE
  9. STESOLID [Suspect]
     Active Substance: DIAZEPAM
  10. OXYNORM [Concomitant]
     Active Substance: OXYCODONE HYDROCHLORIDE
  11. SPIRONOLAKTON NYCOMED [Concomitant]
  12. METFORMIN MEDA [Concomitant]
  13. OXYCONTIN [Concomitant]
     Active Substance: OXYCODONE HYDROCHLORIDE
  14. BRILIQUE [Concomitant]
     Active Substance: TICAGRELOR
  15. IMDUR [Concomitant]
     Active Substance: ISOSORBIDE MONONITRATE
  16. ENALAPRIL ASTIMEX [Concomitant]
  17. GLYCERYL TRINITRATE [Concomitant]
     Active Substance: NITROGLYCERIN

REACTIONS (3)
  - Suicide attempt [Recovered/Resolved]
  - Toxicity to various agents [Recovered/Resolved]
  - Depressed level of consciousness [Recovered/Resolved]

NARRATIVE: CASE EVENT DATE: 20150323
